FAERS Safety Report 5768171-2 (Version None)
Quarter: 2008Q2

REPORT INFORMATION
  Report Type: 
  Country: None (occurrence: None)
  Receive Date: 20080612
  Receipt Date: 20080610
  Transmission Date: 20081010
  Serious: Yes (Hospitalization)
  Sender: FDA-Public Use
  Company Number: US-GILEAD-2008-0016841

PATIENT
  Sex: Female
  Weight: 93.524 kg

DRUGS (10)
  1. LETAIRIS [Suspect]
     Indication: PULMONARY ARTERIAL HYPERTENSION
     Route: 048
     Dates: start: 20080422
  2. EFFEXOR [Concomitant]
     Route: 048
  3. GLIPIZIDE [Concomitant]
     Route: 048
  4. LASIX [Concomitant]
     Route: 048
  5. CALCITRIOL [Concomitant]
     Route: 048
  6. TRICOR [Concomitant]
     Route: 048
  7. LIPITOR [Concomitant]
     Route: 048
  8. FISH OIL [Concomitant]
     Route: 048
  9. CENTRUM TAB SILVER [Concomitant]
     Route: 048
  10. HUMALOG [Concomitant]

REACTIONS (3)
  - OEDEMA PERIPHERAL [None]
  - PNEUMONIA [None]
  - URINARY TRACT INFECTION [None]
